FAERS Safety Report 9444071 (Version 2)
Quarter: 2014Q1

REPORT INFORMATION
  Report Type: Report from Study
  Country: FR (occurrence: FR)
  Receive Date: 20130807
  Receipt Date: 20140315
  Transmission Date: 20141002
  Serious: Yes (Disabling)
  Sender: FDA-Public Use
  Company Number: FR-ROCHE-1256643

PATIENT
  Sex: Male
  Weight: 94 kg

DRUGS (5)
  1. PEG-INTERFERON ALFA 2A [Suspect]
     Indication: HEPATITIS B
     Route: 058
     Dates: start: 20110829, end: 20120727
  2. BARACLUDE [Concomitant]
     Indication: HEPATITIS B
     Route: 065
     Dates: start: 20110301
  3. COAPROVEL [Concomitant]
     Indication: HYPERTENSION
     Route: 065
     Dates: start: 2003
  4. AMLODIPINE [Concomitant]
     Indication: HYPERTENSION
     Route: 065
  5. TENORMINE [Concomitant]
     Indication: HYPERTENSION
     Route: 065

REACTIONS (1)
  - Fall [Recovered/Resolved with Sequelae]
